FAERS Safety Report 25747365 (Version 2)
Quarter: 2025Q4

REPORT INFORMATION
  Report Type: Report from Study
  Country: CA (occurrence: CA)
  Receive Date: 20250901
  Receipt Date: 20251017
  Transmission Date: 20260118
  Serious: Yes (Hospitalization, Other)
  Sender: TEVA
  Company Number: CA-TEVA-VS-3366957

PATIENT
  Age: 77 Year
  Sex: Male

DRUGS (2)
  1. OCTREOTIDE [Suspect]
     Active Substance: OCTREOTIDE
     Indication: Carcinoid tumour
     Dosage: LAST ADMIN DATE: 2025-08-24
     Route: 030
     Dates: start: 20220322
  2. SANDOSTATIN LAR DEPOT [Concomitant]
     Active Substance: OCTREOTIDE ACETATE
     Indication: Product used for unknown indication
     Dosage: UNKNOWN

REACTIONS (7)
  - Toe amputation [Recovered/Resolved]
  - Wound haemorrhage [Unknown]
  - Renal impairment [Recovered/Resolved]
  - Infection [Recovered/Resolved]
  - Accident at home [Recovered/Resolved]
  - Wound [Unknown]
  - Inappropriate schedule of product administration [Unknown]

NARRATIVE: CASE EVENT DATE: 20250101
